FAERS Safety Report 8477206-8 (Version None)
Quarter: 2012Q2

REPORT INFORMATION
  Report Type: 
  Country: None (occurrence: None)
  Receive Date: 20120629
  Receipt Date: 20120615
  Transmission Date: 20120825
  Serious: Yes (Other)
  Sender: FDA-Public Use
  Company Number: BN-RANBAXY-2012RR-57337

PATIENT
  Age: 45 Year
  Sex: Female

DRUGS (1)
  1. DOXYCYCLINE [Suspect]
     Indication: MASTITIS
     Dosage: 100 MG/DAY
     Route: 065

REACTIONS (1)
  - OESOPHAGEAL ULCER [None]
